FAERS Safety Report 5392351-1 (Version None)
Quarter: 2007Q3

REPORT INFORMATION
  Report Type: 
  Country: None (occurrence: None)
  Receive Date: 20070720
  Receipt Date: 20070719
  Transmission Date: 20080115
  Serious: Yes (Other)
  Sender: FDA-Public Use
  Company Number: A0664704A

PATIENT
  Age: 65 Year
  Sex: Female

DRUGS (10)
  1. ALLI [Suspect]
     Dosage: 1CAP THREE TIMES PER DAY
     Route: 048
     Dates: start: 20070618, end: 20070708
  2. VICODIN [Suspect]
  3. METOPROLOL TARTRATE [Concomitant]
  4. BLACK COHOSH [Concomitant]
  5. CALCIUM CHLORIDE [Concomitant]
  6. UNKNOWN [Concomitant]
  7. ASPIRIN [Concomitant]
  8. EXCEDRIN [Concomitant]
  9. ADVAIR DISKUS 100/50 [Concomitant]
  10. ALBUTEROL [Concomitant]

REACTIONS (10)
  - ABDOMINAL PAIN [None]
  - BACK PAIN [None]
  - BLADDER DISCOMFORT [None]
  - DIARRHOEA [None]
  - DRUG INEFFECTIVE [None]
  - NAUSEA [None]
  - NEPHROLITHIASIS [None]
  - PHARMACEUTICAL PRODUCT COMPLAINT [None]
  - STOMACH DISCOMFORT [None]
  - VOMITING [None]
